FAERS Safety Report 9886417 (Version 2)
Quarter: 2014Q1

REPORT INFORMATION
  Report Type: Report from Study
  Country: HU (occurrence: HU)
  Receive Date: 20140210
  Receipt Date: 20140211
  Transmission Date: 20141002
  Serious: Yes (Hospitalization)
  Sender: FDA-Public Use
  Company Number: HU-009507513-1402HUN003067

PATIENT
  Age: 71 Year
  Sex: Male
  Weight: 88 kg

DRUGS (13)
  1. SITAGLIPTIN PHOSPHATE [Suspect]
     Indication: TYPE 2 DIABETES MELLITUS
     Dosage: UNK
     Route: 048
     Dates: start: 20090826
  2. AMARYL [Suspect]
     Indication: TYPE 2 DIABETES MELLITUS
     Dosage: TOTAL DAILY DOSE: 3 MG, QD
     Route: 048
     Dates: start: 20120809
  3. ZOCOR [Concomitant]
     Indication: HYPERLIPIDAEMIA
     Dosage: TOTAL DAILY DOSE: 10 MG
     Dates: start: 20080101
  4. ASTRIX [Concomitant]
     Indication: CORONARY ARTERY DISEASE
     Dosage: TOTAL DAILY DOSE: 100 MG
     Dates: start: 20080101
  5. DILATREND [Concomitant]
     Indication: ANGINA PECTORIS
     Dosage: TOTAL DAILY DOSE: 12.5MG
     Dates: start: 20080101
  6. OLICARD [Concomitant]
     Indication: ANGINA PECTORIS
     Dosage: TOTAL DILY DOSE: 40 MG
     Dates: start: 20080101
  7. QUAMATEL [Concomitant]
     Indication: PROPHYLAXIS
     Dosage: TOTAL DAILY DOSE: 40 MG
     Dates: start: 20080101
  8. RAMIPRIL [Concomitant]
     Indication: HYPERTENSION
     Dosage: TOTAL DAILY DOSE: 5 MG
     Dates: start: 20080101
  9. ADEXOR [Concomitant]
     Indication: ANGINA PECTORIS
     Dosage: TOTAL DAILY DOSE: 70 MG
     Dates: start: 20080101
  10. MEFORAL [Concomitant]
     Indication: DIABETES MELLITUS
     Dosage: TOTAL DAILY DOSE: 1700 MG
     Dates: start: 20120809
  11. FUROSEMIDE [Concomitant]
     Indication: HYPERTENSION
     Dosage: TOTAL DAILY DOSE: 20 MG
     Route: 048
     Dates: start: 20120809
  12. KALDYUM [Concomitant]
     Indication: PROPHYLAXIS
     Dosage: TOTAL DAILY DOSE: 600MG
     Dates: start: 20120809
  13. HYDROCHLOROTHIAZIDE [Concomitant]
     Indication: HYPERTENSION
     Dosage: TOTAL DAILY DOSE: 25MG
     Dates: start: 20110216

REACTIONS (1)
  - Brain contusion [Recovered/Resolved]
